FAERS Safety Report 6484231-5 (Version None)
Quarter: 2009Q4

REPORT INFORMATION
  Report Type: 
  Country: None (occurrence: None)
  Receive Date: 20091209
  Receipt Date: 20091130
  Transmission Date: 20100525
  Serious: Yes (Life-Threatening)
  Sender: FDA-Public Use
  Company Number: B0599689A

PATIENT
  Sex: Male
  Weight: 98.4 kg

DRUGS (4)
  1. ROPINIROLE HYDROCHLORIDE [Suspect]
     Indication: PARKINSON'S DISEASE
     Dosage: 4MG THREE TIMES PER DAY
     Route: 048
     Dates: start: 20060201, end: 20091101
  2. SINEMET [Concomitant]
     Dosage: 275MG THREE TIMES PER DAY
     Route: 048
  3. TRASIDREX [Concomitant]
     Dosage: 1TAB PER DAY
     Route: 048
  4. CANDESARTAN CILEXETIL [Concomitant]
     Dosage: 4MG PER DAY
     Route: 048
     Dates: start: 20071201

REACTIONS (1)
  - SUDDEN ONSET OF SLEEP [None]
